FAERS Safety Report 9711566 (Version 1)
Quarter: 2013Q4

REPORT INFORMATION
  Report Type: Spontaneous
  Country: US (occurrence: US)
  Receive Date: 20131126
  Receipt Date: 20131126
  Transmission Date: 20140711
  Serious: Yes (Other)
  Sender: FDA-Public Use
  Company Number: US-BAYER-2013-141966

PATIENT
  Sex: Female

DRUGS (1)
  1. CIPRO [Suspect]
     Indication: CYSTITIS
     Dosage: 500 MG, UNK

REACTIONS (9)
  - Anaphylactic shock [None]
  - Encephalitis [None]
  - Migraine [None]
  - Tendonitis [None]
  - Apparent death [None]
  - Amnesia [None]
  - Balance disorder [None]
  - Fall [None]
  - Upper limb fracture [None]
